FAERS Safety Report 8148244 (Version 6)
Quarter: 2013Q3

REPORT INFORMATION
  Report Type: Spontaneous
  Country: US (occurrence: US)
  Receive Date: 20110922
  Receipt Date: 20130729
  Transmission Date: 20140515
  Serious: No
  Sender: FDA-Public Use
  Company Number: US-ASTRAZENECA-2011SE34949

PATIENT
  Age: 59 Year
  Sex: Female
  Weight: 52.6 kg

DRUGS (11)
  1. SEROQUEL [Suspect]
     Indication: BIPOLAR DISORDER
     Route: 048
     Dates: start: 2008, end: 20110605
  2. SEROQUEL [Suspect]
     Indication: BIPOLAR DISORDER
     Route: 048
  3. SEROQUEL [Suspect]
     Indication: BIPOLAR DISORDER
     Route: 048
  4. OXYCONTIN [Concomitant]
  5. LORTABS [Concomitant]
  6. XANAX [Concomitant]
  7. CELEXA [Concomitant]
  8. OMEPRAZOLE [Concomitant]
     Route: 048
  9. SOMA [Concomitant]
  10. CARBABENZINE [Concomitant]
  11. MANY OTHER MEDICATIONS [Concomitant]

REACTIONS (11)
  - Anxiety [Recovered/Resolved]
  - Insomnia [Recovered/Resolved]
  - Heat illness [Unknown]
  - Phobic avoidance [Recovered/Resolved]
  - Tachyphrenia [Not Recovered/Not Resolved]
  - Impaired driving ability [Unknown]
  - Feeling abnormal [Unknown]
  - Bipolar disorder [Unknown]
  - Nightmare [Unknown]
  - Drug dose omission [Not Recovered/Not Resolved]
  - Intentional drug misuse [Unknown]
